FAERS Safety Report 24754936 (Version 1)
Quarter: 2024Q4

REPORT INFORMATION
  Report Type: Report from Study
  Country: US (occurrence: US)
  Receive Date: 20241219
  Receipt Date: 20241219
  Transmission Date: 20250115
  Serious: Yes (Hospitalization)
  Sender: ALEXION PHARMACEUTICALS
  Company Number: US-AstraZeneca-CH-00767315A

PATIENT

DRUGS (4)
  1. ANIFROLUMAB [Suspect]
     Active Substance: ANIFROLUMAB
     Route: 065
  2. ANIFROLUMAB [Suspect]
     Active Substance: ANIFROLUMAB
     Route: 065
  3. ANIFROLUMAB [Suspect]
     Active Substance: ANIFROLUMAB
     Route: 065
  4. ANIFROLUMAB [Suspect]
     Active Substance: ANIFROLUMAB
     Route: 065

REACTIONS (2)
  - Migraine [Unknown]
  - Illness [Unknown]
